FAERS Safety Report 14227100 (Version 2)
Quarter: 2017Q4

REPORT INFORMATION
  Report Type: Spontaneous
  Country: JP (occurrence: JP)
  Receive Date: 20171127
  Receipt Date: 20171128
  Transmission Date: 20180321
  Serious: Yes (Other)
  Sender: FDA-Public Use
  Company Number: JP-PFIZER INC-2017504228

PATIENT
  Sex: Female

DRUGS (1)
  1. ZITHROMAC 250MG [Suspect]
     Active Substance: AZITHROMYCIN DIHYDRATE
     Indication: CHLAMYDIAL INFECTION
     Dosage: 1000 MG, 1X/DAY
     Route: 048

REACTIONS (3)
  - Haemorrhage [Unknown]
  - Haematochezia [Unknown]
  - Abdominal pain [Recovering/Resolving]
